FAERS Safety Report 8677228 (Version 2)
Quarter: 2012Q4

REPORT INFORMATION
  Report Type: 
  Country: US (occurrence: US)
  Receive Date: 20120723
  Receipt Date: 20121011
  Transmission Date: 20130627
  Serious: Yes (Hospitalization, Other)
  Sender: FDA-Public Use
  Company Number: US-BAYER-2012-072558

PATIENT
  Age: 22 Year
  Sex: Female
  Weight: 76.19 kg

DRUGS (6)
  1. NATAZIA [Suspect]
     Indication: CONTRACEPTION
     Dosage: UNK
     Route: 048
     Dates: start: 20101126, end: 20120710
  2. NATAZIA [Suspect]
     Indication: MENORRHAGIA
  3. NATAZIA [Suspect]
     Indication: DYSMENORRHOEA
  4. NATAZIA [Suspect]
     Indication: DYSFUNCTIONAL UTERINE BLEEDING
  5. FISH OIL [Concomitant]
     Dosage: Daily dose 2 mg
  6. FLAX SEED OIL [Concomitant]
     Dosage: 1 DF, QD
     Route: 048

REACTIONS (4)
  - Pulmonary embolism [None]
  - Chest pain [None]
  - Dyspnoea [None]
  - Pneumonia [None]
